FAERS Safety Report 9370284 (Version 1)
Quarter: 2013Q2

REPORT INFORMATION
  Report Type: Spontaneous
  Country: BR (occurrence: BR)
  Receive Date: 20130626
  Receipt Date: 20130626
  Transmission Date: 20140414
  Serious: Yes (Hospitalization)
  Sender: FDA-Public Use
  Company Number: BR-ASTRAZENECA-2013SE47705

PATIENT
  Age: 23679 Day
  Sex: Male
  Weight: 64 kg

DRUGS (3)
  1. CRESTOR [Suspect]
     Indication: BLOOD CHOLESTEROL INCREASED
     Route: 048
     Dates: start: 201209
  2. INSULIN [Concomitant]
     Indication: DIABETES MELLITUS
     Dates: start: 201209
  3. ASPIRINA PREVENT [Concomitant]
     Indication: CEREBROVASCULAR ACCIDENT
     Dates: start: 201209

REACTIONS (2)
  - Myocardial infarction [Recovered/Resolved]
  - Pulmonary oedema [Recovered/Resolved]
